FAERS Safety Report 6093337-4 (Version None)
Quarter: 2009Q1

REPORT INFORMATION
  Report Type: 
  Country: None (occurrence: None)
  Receive Date: 20090224
  Receipt Date: 20090224
  Transmission Date: 20090719
  Serious: Yes (Other)
  Sender: FDA-Public Use
  Company Number: None

PATIENT
  Sex: Male

DRUGS (1)
  1. LAMOTRIGINE [Suspect]
     Indication: CONVULSION
     Dosage: 250 MG DAILY PO
     Route: 048
     Dates: start: 20080828

REACTIONS (3)
  - CONVULSION [None]
  - PRODUCT QUALITY ISSUE [None]
  - THERAPEUTIC RESPONSE UNEXPECTED WITH DRUG SUBSTITUTION [None]
